FAERS Safety Report 16080939 (Version 4)
Quarter: 2025Q4

REPORT INFORMATION
  Report Type: Spontaneous
  Country: CA (occurrence: CA)
  Receive Date: 20190316
  Receipt Date: 20251226
  Transmission Date: 20260117
  Serious: Yes (Other)
  Sender: AUROBINDO
  Company Number: CA-AUROBINDO-AUR-APL-2019-013593

PATIENT
  Age: 44 Year
  Sex: Male

DRUGS (16)
  1. IRBESARTAN [Suspect]
     Active Substance: IRBESARTAN
     Indication: Product used for unknown indication
     Dosage: UNK
     Route: 065
  2. ROSUVASTATIN [Suspect]
     Active Substance: ROSUVASTATIN
     Indication: Product used for unknown indication
     Dosage: UNK
     Route: 061
  3. METHOTREXATE [Suspect]
     Active Substance: METHOTREXATE
     Indication: Product used for unknown indication
     Dosage: UNK
     Route: 065
  4. BACLOFEN [Suspect]
     Active Substance: BACLOFEN
     Indication: Product used for unknown indication
     Dosage: UNK
     Route: 065
  5. SECUKINUMAB [Suspect]
     Active Substance: SECUKINUMAB
     Indication: Psoriatic arthropathy
     Dosage: UNK
  6. COSENTYX [Suspect]
     Active Substance: SECUKINUMAB
     Indication: Psoriatic arthropathy
     Dosage: UNK
     Route: 065
  7. DICLOFENAC [Suspect]
     Active Substance: DICLOFENAC
     Indication: Product used for unknown indication
     Dosage: UNK
     Route: 065
  8. Amlodipine 22 [Concomitant]
     Indication: Product used for unknown indication
  9. 43tser [Concomitant]
     Indication: Product used for unknown indication
     Dosage: UNK
     Route: 065
  10. 45etr [Concomitant]
     Indication: Product used for unknown indication
     Dosage: UNK
     Route: 065
  11. DETROL [Concomitant]
     Active Substance: TOLTERODINE TARTRATE
     Indication: Product used for unknown indication
     Dosage: UNK
     Route: 065
  12. 43trs [Concomitant]
     Indication: Product used for unknown indication
     Dosage: UNK
     Route: 065
  13. 54trds [Concomitant]
     Indication: Product used for unknown indication
     Dosage: UNK
     Route: 065
  14. 5trds [Concomitant]
     Indication: Product used for unknown indication
     Dosage: UNK
     Route: 065
  15. 435tewrs [Concomitant]
     Indication: Product used for unknown indication
     Dosage: UNK
     Route: 065
  16. Tolterodine 22 [Concomitant]
     Indication: Product used for unknown indication
     Dosage: UNK
     Route: 065

REACTIONS (10)
  - Blood pressure systolic increased [Recovering/Resolving]
  - Arthralgia [Recovering/Resolving]
  - Inflammatory marker increased [Recovering/Resolving]
  - Joint swelling [Recovering/Resolving]
  - Lipoma [Recovering/Resolving]
  - Musculoskeletal discomfort [Recovering/Resolving]
  - Prostatic specific antigen increased [Recovering/Resolving]
  - Psoriasis [Recovering/Resolving]
  - Seronegative arthritis [Recovering/Resolving]
  - Drug ineffective [Recovering/Resolving]
